FAERS Safety Report 7041381-2 (Version None)
Quarter: 2010Q4

REPORT INFORMATION
  Report Type: 
  Country: None (occurrence: None)
  Receive Date: 20101013
  Receipt Date: 20101006
  Transmission Date: 20110411
  Serious: Yes (Other)
  Sender: FDA-Public Use
  Company Number: AU-SANOFI-AVENTIS-2010SA060229

PATIENT
  Sex: Male

DRUGS (1)
  1. FEXAL [Suspect]
     Route: 048
     Dates: start: 20100930, end: 20101006

REACTIONS (2)
  - ABDOMINAL PAIN UPPER [None]
  - HAEMATOCHEZIA [None]
